FAERS Safety Report 5513045-5 (Version None)
Quarter: 2007Q4

REPORT INFORMATION
  Report Type: 
  Country: None (occurrence: None)
  Receive Date: 20071112
  Receipt Date: 20070809
  Transmission Date: 20080405
  Serious: No
  Sender: FDA-Public Use
  Company Number: US-ABBOTT-07P-163-0377588-00

PATIENT
  Sex: Male
  Weight: 113.4 kg

DRUGS (1)
  1. TRICOR [Suspect]
     Indication: BLOOD TRIGLYCERIDES INCREASED
     Route: 048
     Dates: start: 20070301, end: 20070726

REACTIONS (2)
  - ABDOMINAL PAIN UPPER [None]
  - BACK PAIN [None]
